FAERS Safety Report 12138327 (Version 1)
Quarter: 2016Q1

REPORT INFORMATION
  Report Type: Report from Study
  Country: BE (occurrence: BE)
  Receive Date: 20160302
  Receipt Date: 20160302
  Transmission Date: 20160526
  Serious: Yes (Death)
  Sender: FDA-Public Use
  Company Number: BE-BAYER-2016-017219

PATIENT
  Sex: Male

DRUGS (11)
  1. TRADONAL RETARD [Concomitant]
     Dosage: 100 MG, UNK
  2. LANTUS [Concomitant]
     Active Substance: INSULIN GLARGINE
  3. PANTOPRAZOLE [Concomitant]
     Active Substance: PANTOPRAZOLE SODIUM
     Dosage: 20 MG, UNK
  4. D-CURE [Concomitant]
     Dosage: UNK
  5. NEXAVAR [Suspect]
     Active Substance: SORAFENIB
     Indication: HEPATOCELLULAR CARCINOMA
     Dosage: 800 MG, QD
     Route: 048
     Dates: start: 20160122
  6. ASPIRIN CARDIO [Concomitant]
     Active Substance: ASPIRIN
  7. ALLOPURINOL. [Concomitant]
     Active Substance: ALLOPURINOL
     Dosage: 300 MG, UNK
  8. DUROGESIC [Concomitant]
     Active Substance: FENTANYL
     Dosage: 25 ?G, UNK
  9. XGEVA [Concomitant]
     Active Substance: DENOSUMAB
  10. TRADONAL RETARD [Concomitant]
     Dosage: 50 MG, UNK
  11. GLUCOPHAGE [Concomitant]
     Active Substance: METFORMIN HYDROCHLORIDE
     Dosage: 500 MG, UNK

REACTIONS (8)
  - Pain [None]
  - Mucosal inflammation [None]
  - Dysphonia [Not Recovered/Not Resolved]
  - Palmar-plantar erythrodysaesthesia syndrome [None]
  - Cardiac discomfort [Fatal]
  - Myocardial infarction [Fatal]
  - Constipation [None]
  - Productive cough [Not Recovered/Not Resolved]

NARRATIVE: CASE EVENT DATE: 20160127
